FAERS Safety Report 5824586-5 (Version None)
Quarter: 2008Q3

REPORT INFORMATION
  Report Type: 
  Country: None (occurrence: None)
  Receive Date: 20080722
  Receipt Date: 20030918
  Transmission Date: 20090109
  Serious: Yes (Other)
  Sender: FDA-Public Use
  Company Number: 0310012

PATIENT
  Age: 2 Month
  Sex: Male
  Weight: 4.65 kg

DRUGS (7)
  1. ORFADIN [Suspect]
     Indication: TYROSINAEMIA
     Dosage: 5 MG, 2 IN 1 D, ORAL
     Route: 048
     Dates: start: 20030427
  2. ZINIC (ZINC) [Concomitant]
  3. FUNGIZONE (AMPHOTERICINE B) [Concomitant]
  4. ALDACTONE [Concomitant]
  5. MOPRAL (OMEPRAZOLE) [Concomitant]
  6. MOTILIUM [Concomitant]
  7. UVESTEROL ADEC (VITAMIN A, VITAMIN D2, VITAMIN C, VITAMINE E) [Concomitant]

REACTIONS (1)
  - GRAND MAL CONVULSION [None]
